FAERS Safety Report 5314899-8 (Version None)
Quarter: 2007Q2

REPORT INFORMATION
  Report Type: 
  Country: None (occurrence: None)
  Receive Date: 20070502
  Receipt Date: 20070425
  Transmission Date: 20071010
  Serious: Yes (Other)
  Sender: FDA-Public Use
  Company Number: JP-ROCHE-494678

PATIENT
  Age: 66 Year
  Sex: Male

DRUGS (5)
  1. LUPRAC [Suspect]
     Indication: DRUG USE FOR UNKNOWN INDICATION
     Route: 065
     Dates: start: 20061027, end: 20061114
  2. MYSLEE [Concomitant]
  3. BLOPRESS [Concomitant]
  4. PARIET [Concomitant]
  5. NORVASC [Concomitant]

REACTIONS (1)
  - TOXIC SKIN ERUPTION [None]
